FAERS Safety Report 12809925 (Version 3)
Quarter: 2017Q1

REPORT INFORMATION
  Report Type: Spontaneous
  Country: CA (occurrence: CA)
  Receive Date: 20161005
  Receipt Date: 20170306
  Transmission Date: 20170428
  Serious: Yes (Other)
  Sender: FDA-Public Use
  Company Number: CA-ROCHE-1837563

PATIENT
  Age: 56 Year
  Sex: Female

DRUGS (5)
  1. SALBUTAMOL [Concomitant]
     Active Substance: ALBUTEROL
     Indication: PRODUCT USED FOR UNKNOWN INDICATION
     Dosage: UNK, Q4H
     Route: 065
  2. ZENHALE [Concomitant]
     Active Substance: FORMOTEROL FUMARATE\MOMETASONE FUROATE
     Dosage: UNK, Q4H
     Route: 065
  3. XOLAIR [Suspect]
     Active Substance: OMALIZUMAB
     Route: 058
     Dates: start: 2016
  4. ZENHALE [Concomitant]
     Active Substance: FORMOTEROL FUMARATE\MOMETASONE FUROATE
     Indication: SINUSITIS
     Dosage: TWICE A DAY AND TWICE AT NIGHT
     Route: 065
  5. XOLAIR [Suspect]
     Active Substance: OMALIZUMAB
     Indication: ASTHMA
     Dosage: 300 MG, BIW
     Route: 058
     Dates: start: 20131203

REACTIONS (17)
  - Laryngitis [Unknown]
  - Lung disorder [Unknown]
  - Wheezing [Unknown]
  - Productive cough [Unknown]
  - Skin wrinkling [Unknown]
  - Lower respiratory tract infection [Recovering/Resolving]
  - Dyspepsia [Unknown]
  - Sinus headache [Unknown]
  - Hypersensitivity [Recovering/Resolving]
  - Sinusitis [Recovering/Resolving]
  - Pharyngitis [Unknown]
  - Asthma [Unknown]
  - Dyspnoea [Recovered/Resolved]
  - Cough [Unknown]
  - Oral disorder [Unknown]
  - Malaise [Unknown]
  - Drug intolerance [Unknown]

NARRATIVE: CASE EVENT DATE: 20140306
